FAERS Safety Report 22107848 (Version 1)
Quarter: 2023Q1

REPORT INFORMATION
  Report Type: Spontaneous
  Country: US (occurrence: None)
  Receive Date: 20230317
  Receipt Date: 20230317
  Transmission Date: 20230418
  Serious: Yes (Other)
  Sender: FDA-Public Use
  Company Number: US-ROCHE-3308498

PATIENT
  Sex: Male

DRUGS (1)
  1. XOLAIR [Suspect]
     Active Substance: OMALIZUMAB
     Indication: Chronic spontaneous urticaria
     Route: 065

REACTIONS (6)
  - Blood glucose increased [Unknown]
  - Diabetes mellitus [Unknown]
  - Hypertension [Unknown]
  - Anaemia [Unknown]
  - Histamine intolerance [Unknown]
  - COVID-19 [Unknown]
